FAERS Safety Report 21257659 (Version 2)
Quarter: 2022Q3

REPORT INFORMATION
  Report Type: Spontaneous
  Country: CA (occurrence: CA)
  Receive Date: 20220826
  Receipt Date: 20220928
  Transmission Date: 20221026
  Serious: Yes (Other)
  Sender: FDA-Public Use
  Company Number: CA-PFIZER INC-202200624764

PATIENT
  Age: 62 Year
  Sex: Male

DRUGS (3)
  1. ABRILADA [Suspect]
     Active Substance: ADALIMUMAB-AFZB
     Indication: Crohn^s disease
     Dosage: 80 MG, WEEKLY (EVERY 7 DAYS, NOT YET STARTED)
     Route: 058
  2. ABRILADA [Suspect]
     Active Substance: ADALIMUMAB-AFZB
     Dosage: 80 MG, WEEKLY (EVERY 7 DAYS)
     Route: 058
     Dates: start: 20220506, end: 202208
  3. ABRILADA [Suspect]
     Active Substance: ADALIMUMAB-AFZB
     Dosage: 40 MG, WEEKLY (EVERY 7 DAYS)
     Route: 058
     Dates: start: 202208

REACTIONS (7)
  - Nephrolithiasis [Not Recovered/Not Resolved]
  - Ureteral disorder [Recovered/Resolved]
  - Abdominal pain lower [Recovered/Resolved]
  - Urinary tract disorder [Recovered/Resolved]
  - Drug level increased [Not Recovered/Not Resolved]
  - COVID-19 [Recovered/Resolved]
  - Off label use [Unknown]

NARRATIVE: CASE EVENT DATE: 20220101
